FAERS Safety Report 7314158-8 (Version None)
Quarter: 2011Q1

REPORT INFORMATION
  Report Type: 
  Country: None (occurrence: None)
  Receive Date: 20110225
  Receipt Date: 20100521
  Transmission Date: 20110831
  Serious: No
  Sender: FDA-Public Use
  Company Number: US-MYLANLABS-2010S1009124

PATIENT
  Age: 16 Year
  Sex: Male

DRUGS (2)
  1. AMNESTEEM [Suspect]
     Indication: ACNE
     Route: 048
     Dates: start: 20100127, end: 20100520
  2. CONCERTA [Concomitant]

REACTIONS (4)
  - MIGRAINE [None]
  - FATIGUE [None]
  - MYALGIA [None]
  - ARTHRALGIA [None]
